FAERS Safety Report 4953461-3 (Version None)
Quarter: 2006Q1

REPORT INFORMATION
  Report Type: 
  Country: None (occurrence: None)
  Receive Date: 20060131
  Receipt Date: 20050520
  Transmission Date: 20060701
  Serious: Yes (Hospitalization)
  Sender: FDA-Public Use
  Company Number: 8008284

PATIENT
  Age: 56 Year
  Sex: Male
  Weight: 71.8 kg

DRUGS (4)
  1. KEPPRA [Suspect]
     Indication: PARTIAL SEIZURES
     Dosage: 250 MG 2/D PO
     Route: 048
     Dates: start: 20041201, end: 20041202
  2. OXCARBAZEPINE [Concomitant]
  3. TOPIRAMATE [Concomitant]
  4. PHENYTOIN [Concomitant]

REACTIONS (1)
  - PSYCHOTIC DISORDER [None]
